FAERS Safety Report 21741648 (Version 4)
Quarter: 2024Q1

REPORT INFORMATION
  Report Type: Report from Study
  Country: CA (occurrence: CA)
  Receive Date: 20221216
  Receipt Date: 20240220
  Transmission Date: 20240409
  Serious: Yes (Hospitalization)
  Sender: FDA-Public Use
  Company Number: CA-BAUSCH-BL-2022-018410

PATIENT
  Age: 77 Year
  Sex: Male
  Weight: 65.83 kg

DRUGS (5)
  1. SILIQ [Suspect]
     Active Substance: BRODALUMAB
     Indication: Psoriasis
     Dosage: 210MG/1.5ML, WEEKLY (INDUCTION WEEKLY)
     Route: 058
     Dates: start: 20220630, end: 202207
  2. SILIQ [Suspect]
     Active Substance: BRODALUMAB
     Dosage: 210 MG / 1.5ML, Q2 WEEKS
     Route: 058
     Dates: start: 2022, end: 2022
  3. SILIQ [Suspect]
     Active Substance: BRODALUMAB
     Dosage: 210 MG / 1.5ML, WEEKLY (OFF-LABEL)
     Route: 058
     Dates: start: 2022
  4. SORIATANE [Concomitant]
     Active Substance: ACITRETIN
     Indication: Psoriasis
     Route: 048
  5. NEORAL [Concomitant]
     Active Substance: CYCLOSPORINE
     Indication: Psoriasis
     Route: 048

REACTIONS (9)
  - Male reproductive tract disorder [Recovered/Resolved]
  - Psoriasis [Recovering/Resolving]
  - Oral disorder [Recovered/Resolved]
  - Oral discomfort [Recovered/Resolved]
  - Influenza like illness [Recovered/Resolved]
  - Patient dissatisfaction with treatment [Unknown]
  - Off label use [Unknown]
  - Intercepted product prescribing error [Unknown]
  - Therapy interrupted [Unknown]

NARRATIVE: CASE EVENT DATE: 20220101
